FAERS Safety Report 7799122-7 (Version None)
Quarter: 2011Q4

REPORT INFORMATION
  Report Type: 
  Country: None (occurrence: None)
  Receive Date: 20111006
  Receipt Date: 20110930
  Transmission Date: 20120403
  Serious: Yes (Hospitalization)
  Sender: FDA-Public Use
  Company Number: PH-PFIZER INC-2011164107

PATIENT
  Age: 57 Year
  Sex: Female

DRUGS (6)
  1. FENTANYL [Concomitant]
     Dosage: UNKNOWN
  2. MORPHINE [Concomitant]
     Dosage: UNKNOWN
  3. ZYVOX [Suspect]
     Indication: BRONCHOPNEUMONIA
     Dosage: UNKNOWN
     Dates: start: 20110702, end: 20110706
  4. FLUCONAZOLE [Concomitant]
  5. LEXAPRO [Concomitant]
     Dosage: UNKNOWN
  6. CODEINE [Concomitant]

REACTIONS (2)
  - CHILLS [None]
  - TREMOR [None]
